FAERS Safety Report 14097450 (Version 1)
Quarter: 2017Q4

REPORT INFORMATION
  Report Type: Spontaneous
  Country: US (occurrence: US)
  Receive Date: 20171017
  Receipt Date: 20171017
  Transmission Date: 20180321
  Serious: No
  Sender: FDA-Public Use
  Company Number: None

PATIENT
  Age: 39 Year
  Sex: Male
  Weight: 81 kg

DRUGS (1)
  1. OXYCODONE HYDROCHLORIDE. [Suspect]
     Active Substance: OXYCODONE HYDROCHLORIDE
     Indication: PAIN
     Dosage: ?          QUANTITY:120 TABLET(S);?
     Route: 048
     Dates: start: 20171015, end: 20171017

REACTIONS (1)
  - Drug ineffective [None]

NARRATIVE: CASE EVENT DATE: 20171016
